FAERS Safety Report 6979667-X (Version None)
Quarter: 2010Q3

REPORT INFORMATION
  Report Type: 
  Country: None (occurrence: None)
  Receive Date: 20100908
  Receipt Date: 20100827
  Transmission Date: 20110219
  Serious: Yes (Death, Hospitalization)
  Sender: FDA-Public Use
  Company Number: A-CH2010-39355

PATIENT
  Age: 26 Year
  Sex: Male
  Weight: 47.5 kg

DRUGS (5)
  1. TRACLEER [Suspect]
     Indication: PULMONARY ARTERIAL HYPERTENSION
     Dosage: 125 MG, BID, ORAL; 62.5 MG, BID, ORAL
     Route: 048
     Dates: start: 20100301, end: 20100401
  2. TRACLEER [Suspect]
     Indication: PULMONARY ARTERIAL HYPERTENSION
     Dosage: 125 MG, BID, ORAL; 62.5 MG, BID, ORAL
     Route: 048
     Dates: start: 20100401, end: 20100610
  3. FUROSEMIDE [Concomitant]
  4. POTASSIUM (POTASSIUM) [Concomitant]
  5. AMIODARONE HCL [Concomitant]

REACTIONS (4)
  - ARRHYTHMIA [None]
  - HYPERTHYROIDISM [None]
  - SUDDEN DEATH [None]
  - SUPRAVENTRICULAR TACHYCARDIA [None]
